FAERS Safety Report 4367652-6 (Version None)
Quarter: 2004Q2

REPORT INFORMATION
  Report Type: 
  Country: None (occurrence: None)
  Receive Date: 20040601
  Receipt Date: 20031023
  Transmission Date: 20050107
  Serious: Yes (Other)
  Sender: FDA-Public Use
  Company Number: US-GLAXOSMITHKLINE-A0431433A

PATIENT
  Age: 17 Year
  Sex: Male

DRUGS (1)
  1. PAXIL [Suspect]
     Indication: POST-TRAUMATIC STRESS DISORDER
     Dosage: 30MG PER DAY
     Route: 048
     Dates: start: 20030301, end: 20031001

REACTIONS (8)
  - AGGRESSION [None]
  - AMNESIA [None]
  - ANGER [None]
  - DRUG WITHDRAWAL SYNDROME [None]
  - DYSPNOEA [None]
  - ILL-DEFINED DISORDER [None]
  - PALPITATIONS [None]
  - PANIC ATTACK [None]
